FAERS Safety Report 4374490-7 (Version None)
Quarter: 2004Q2

REPORT INFORMATION
  Report Type: 
  Country: None (occurrence: None)
  Receive Date: 20040603
  Receipt Date: 20040517
  Transmission Date: 20050107
  Serious: Yes (Other)
  Sender: FDA-Public Use
  Company Number: EWC040539302

PATIENT
  Age: 28 Year
  Sex: Female
  Weight: 96 kg

DRUGS (8)
  1. HUMATROPE [Suspect]
     Indication: GROWTH HORMONE DEFICIENCY
     Dosage: 0.5 MG
     Dates: start: 19960101
  2. DESMOPRESSIN [Concomitant]
  3. MICROGYNON [Concomitant]
  4. HYDROCORTISON [Concomitant]
  5. ELTROXIN (LEVOTHYROXINE SODIUM) [Concomitant]
  6. OMEPRAZOLE [Concomitant]
  7. FERROFUMARAT (FERROUS FUMARATE) [Concomitant]
  8. OXAZEPAM [Concomitant]

REACTIONS (1)
  - HEPATIC ADENOMA [None]
